FAERS Safety Report 4810529-X (Version None)
Quarter: 2005Q4

REPORT INFORMATION
  Report Type: 
  Country: None (occurrence: None)
  Receive Date: 20051025
  Receipt Date: 20051025
  Transmission Date: 20060501
  Serious: Yes (Other)
  Sender: FDA-Public Use
  Company Number: None

PATIENT
  Age: 84 Year
  Sex: Female
  Weight: 59.3 kg

DRUGS (11)
  1. VENLAFAXINE [Suspect]
  2. BUPROPION HCL [Concomitant]
  3. LISINOPRIL [Concomitant]
  4. VERAPAMIL [Concomitant]
  5. METOPROLOL TARTRATE [Concomitant]
  6. ASPIRIN [Concomitant]
  7. MILK OF MAGNESIA TAB [Concomitant]
  8. VENLAFAXINE HCL [Concomitant]
  9. FERROUS SULFATE TAB [Concomitant]
  10. ACETAMINOPHEN [Concomitant]
  11. PHENYTOIN EXT REL CAP [Concomitant]

REACTIONS (1)
  - HYPERTENSION [None]
